FAERS Safety Report 7902611-5 (Version None)
Quarter: 2011Q4

REPORT INFORMATION
  Report Type: 
  Country: None (occurrence: None)
  Receive Date: 20111108
  Receipt Date: 20111025
  Transmission Date: 20120403
  Serious: Yes (Hospitalization, Disabling, Congenital Anomaly)
  Sender: FDA-Public Use
  Company Number: US-ROCHE-GNE320214

PATIENT
  Sex: Male

DRUGS (2)
  1. OMALIZUMAB [Suspect]
     Indication: ASTHMA
     Dosage: 300 MG, Q2W
     Route: 063
     Dates: start: 20100831
  2. OMALIZUMAB [Suspect]
     Dosage: 300 MG, Q2W
     Route: 064
     Dates: start: 20110427

REACTIONS (5)
  - HYDROCELE [None]
  - GASTROOESOPHAGEAL REFLUX DISEASE [None]
  - PREMATURE BABY [None]
  - UMBILICAL HERNIA [None]
  - ACROCHORDON [None]
